FAERS Safety Report 20446945 (Version 3)
Quarter: 2022Q2

REPORT INFORMATION
  Report Type: Spontaneous
  Country: GR (occurrence: GR)
  Receive Date: 20220208
  Receipt Date: 20220425
  Transmission Date: 20220720
  Serious: Yes (Other)
  Sender: FDA-Public Use
  Company Number: GR-HORIZON THERAPEUTICS-HZN-2022-000990

PATIENT

DRUGS (9)
  1. RAVICTI [Suspect]
     Active Substance: GLYCEROL PHENYLBUTYRATE
     Indication: Argininosuccinate lyase deficiency
     Dosage: 3 ML
     Route: 065
     Dates: start: 2019
  2. RAVICTI [Suspect]
     Active Substance: GLYCEROL PHENYLBUTYRATE
     Dosage: 1.3 ML, QID
     Route: 065
  3. ARGININE [Concomitant]
     Active Substance: ARGININE
     Indication: Product used for unknown indication
     Dosage: 200 MG/KG, QID
     Route: 065
  4. FENOFIBRATE [Concomitant]
     Active Substance: FENOFIBRATE
     Indication: Product used for unknown indication
     Dosage: 75 MG, QD
     Route: 065
     Dates: start: 202106
  5. PROZERO [Concomitant]
     Active Substance: MENTHOL
     Indication: Medical diet
     Route: 065
  6. MAXIJUL [Concomitant]
     Indication: Nutritional supplementation
     Route: 065
  7. CALOGEN NEUTRAL [Concomitant]
     Indication: Product used for unknown indication
     Route: 065
  8. PAEDIATRIC SERAVIT [Concomitant]
     Indication: Mineral supplementation
     Route: 065
  9. FISH OIL\TOCOPHEROL [Concomitant]
     Active Substance: FISH OIL\TOCOPHEROL
     Indication: Product used for unknown indication
     Dosage: 1000 MG, BID

REACTIONS (4)
  - Hepatic fibrosis [Not Recovered/Not Resolved]
  - Blood triglycerides increased [Not Recovered/Not Resolved]
  - Hepatomegaly [Unknown]
  - Hyperlipidaemia [Unknown]
